FAERS Safety Report 6146406-4 (Version None)
Quarter: 2009Q2

REPORT INFORMATION
  Report Type: 
  Country: None (occurrence: None)
  Receive Date: 20090407
  Receipt Date: 20090327
  Transmission Date: 20091009
  Serious: Yes (Hospitalization)
  Sender: FDA-Public Use
  Company Number: US-BAXTER-2009BH004934

PATIENT
  Age: 5 Year
  Sex: Male

DRUGS (2)
  1. GAMMAGARD LIQUID [Suspect]
     Indication: DRUG USE FOR UNKNOWN INDICATION
     Route: 042
     Dates: start: 20090309, end: 20090309
  2. GAMMAGARD LIQUID [Suspect]
     Route: 042
     Dates: start: 20090311, end: 20090311

REACTIONS (1)
  - HAEMOLYSIS [None]
